FAERS Safety Report 5934325-5 (Version None)
Quarter: 2008Q4

REPORT INFORMATION
  Report Type: 
  Country: None (occurrence: None)
  Receive Date: 20081029
  Receipt Date: 20081020
  Transmission Date: 20090506
  Serious: Yes (Hospitalization, Other)
  Sender: FDA-Public Use
  Company Number: PHHY2008BR14773

PATIENT
  Age: 67 Year
  Sex: Female
  Weight: 47 kg

DRUGS (2)
  1. FORASEQ [Suspect]
     Indication: ASTHMA
     Dosage: FOR EVERY 12 HOURS
     Dates: start: 20070101
  2. SODIUM BICARBONATE [Concomitant]

REACTIONS (4)
  - DEHYDRATION [None]
  - DYSPHONIA [None]
  - WEIGHT DECREASED [None]
  - WHEEZING [None]
